FAERS Safety Report 8541556-7 (Version None)
Quarter: 2012Q3

REPORT INFORMATION
  Report Type: 
  Country: None (occurrence: None)
  Receive Date: 20120726
  Receipt Date: 20120518
  Transmission Date: 20120928
  Serious: No
  Sender: FDA-Public Use
  Company Number: US-MUTUAL PHARMACEUTICAL COMPANY, INC.-CLCY20120085

PATIENT
  Sex: Male
  Weight: 74.91 kg

DRUGS (5)
  1. COLCRYS [Suspect]
     Route: 048
     Dates: start: 20120416, end: 20120422
  2. COLCRYS [Suspect]
     Indication: GOUT
     Route: 048
     Dates: start: 20120415, end: 20120416
  3. ALEVE [Concomitant]
     Indication: GOUT
     Route: 048
     Dates: start: 20120421
  4. CARDIZEM [Concomitant]
     Indication: ATRIAL FIBRILLATION
     Route: 048
  5. COUMADIN [Concomitant]
     Indication: ATRIAL FIBRILLATION
     Route: 048

REACTIONS (1)
  - DRUG INEFFECTIVE [None]
